FAERS Safety Report 6472609-5 (Version None)
Quarter: 2009Q4

REPORT INFORMATION
  Report Type: 
  Country: None (occurrence: None)
  Receive Date: 20091203
  Receipt Date: 20090117
  Transmission Date: 20100525
  Serious: No
  Sender: FDA-Public Use
  Company Number: US-AMGEN-KDL323198

PATIENT
  Sex: Female

DRUGS (2)
  1. ENBREL [Suspect]
     Indication: PSORIATIC ARTHROPATHY
     Route: 058
  2. ARAVA [Concomitant]
     Route: 048

REACTIONS (6)
  - HYPOAESTHESIA [None]
  - INJECTION SITE SWELLING [None]
  - PARAESTHESIA [None]
  - PSORIASIS [None]
  - PSORIATIC ARTHROPATHY [None]
  - RASH ERYTHEMATOUS [None]
